FAERS Safety Report 17165407 (Version 2)
Quarter: 2019Q4

REPORT INFORMATION
  Report Type: Spontaneous
  Country: US (occurrence: US)
  Receive Date: 20191217
  Receipt Date: 20191226
  Transmission Date: 20200122
  Serious: No
  Sender: FDA-Public Use
  Company Number: US-BEH-2019110459

PATIENT
  Sex: Male

DRUGS (1)
  1. HIZENTRA [Suspect]
     Active Substance: HUMAN IMMUNOGLOBULIN G
     Indication: HYPOGAMMAGLOBULINAEMIA
     Dosage: 3 GRAM, QOW
     Route: 058
     Dates: start: 20190102

REACTIONS (6)
  - Accidental exposure to product [Unknown]
  - Accidental exposure to product [Recovering/Resolving]
  - Skin discomfort [Unknown]
  - Skin burning sensation [Unknown]
  - Skin irritation [Recovering/Resolving]
  - Erythema [Recovering/Resolving]
